FAERS Safety Report 21569364 (Version 1)
Quarter: 2022Q4

REPORT INFORMATION
  Report Type: Spontaneous
  Country: GR (occurrence: GR)
  Receive Date: 20221109
  Receipt Date: 20221109
  Transmission Date: 20230113
  Serious: Yes (Other)
  Sender: FDA-Public Use
  Company Number: None

PATIENT
  Age: 67 Year
  Sex: Male
  Weight: 70 kg

DRUGS (3)
  1. ATORVASTATIN [Suspect]
     Active Substance: ATORVASTATIN
     Indication: Product used for unknown indication
     Dosage: DURATION: 30 DAYS
     Route: 065
     Dates: start: 20160912, end: 20161012
  2. PITAVASTATIN [Suspect]
     Active Substance: PITAVASTATIN
     Indication: Product used for unknown indication
     Dosage: DURATION: 31 DAYS
     Route: 065
     Dates: start: 20200811, end: 20200911
  3. EZETIMIBE [Concomitant]
     Active Substance: EZETIMIBE
     Indication: Product used for unknown indication
     Dosage: DURATION: 28 DAYS
     Dates: start: 20210223, end: 20210323

REACTIONS (4)
  - Myalgia [Unknown]
  - Pain [Unknown]
  - Myalgia [Unknown]
  - Myalgia [Unknown]

NARRATIVE: CASE EVENT DATE: 20160912
